FAERS Safety Report 12069272 (Version 1)
Quarter: 2016Q1

REPORT INFORMATION
  Report Type: Report from Study
  Country: BR (occurrence: BR)
  Receive Date: 20160211
  Receipt Date: 20160211
  Transmission Date: 20160526
  Serious: Yes (Hospitalization)
  Sender: FDA-Public Use
  Company Number: PHHY2016BR017224

PATIENT
  Sex: Female
  Weight: 40 kg

DRUGS (1)
  1. ACLASTA [Suspect]
     Active Substance: ZOLEDRONIC ACID
     Indication: OSTEOPOROSIS
     Dosage: 5 MG, Q12MO
     Route: 042
     Dates: start: 20141204

REACTIONS (4)
  - Osteopenia [Recovering/Resolving]
  - Urinary tract infection [Recovering/Resolving]
  - Fall [Unknown]
  - Post-traumatic stress disorder [Recovering/Resolving]
